FAERS Safety Report 9824155 (Version 1)
Quarter: 2014Q1

REPORT INFORMATION
  Report Type: Spontaneous
  Country: US (occurrence: US)
  Receive Date: 20140116
  Receipt Date: 20140116
  Transmission Date: 20141002
  Serious: Yes (Other)
  Sender: FDA-Public Use
  Company Number: US-GLAXOSMITHKLINE-A1056192A

PATIENT
  Age: 65 Year
  Sex: Female

DRUGS (5)
  1. NARATRIPTAN [Suspect]
     Indication: MIGRAINE
     Dosage: 2.5MG AS REQUIRED
     Route: 048
     Dates: start: 20120805, end: 201208
  2. BETA BLOCKER [Concomitant]
  3. ANTIDEPRESSANT [Concomitant]
  4. ZYRTEC [Concomitant]
  5. ZANAFLEX [Concomitant]

REACTIONS (4)
  - Loss of consciousness [Recovered/Resolved]
  - Convulsion [Recovered/Resolved]
  - Facial bones fracture [Recovered/Resolved]
  - Fall [Recovered/Resolved]
